FAERS Safety Report 17553050 (Version 1)
Quarter: 2020Q1

REPORT INFORMATION
  Report Type: Report from Study
  Country: SG (occurrence: SG)
  Receive Date: 20200317
  Receipt Date: 20200317
  Transmission Date: 20200409
  Serious: Yes (Hospitalization)
  Sender: FDA-Public Use
  Company Number: NVSC2020SG069503

PATIENT
  Age: 21 Year
  Sex: Female
  Weight: 53 kg

DRUGS (12)
  1. DEXAMETHASONE. [Suspect]
     Active Substance: DEXAMETHASONE
     Indication: NON-HODGKIN^S LYMPHOMA
     Dosage: 40 UNK, QD
     Route: 042
     Dates: start: 20200226
  2. DIFFLAM [Concomitant]
     Active Substance: BENZYDAMINE HYDROCHLORIDE
     Indication: PROPHYLAXIS
     Dosage: UNK
     Route: 065
     Dates: start: 20200218, end: 20200224
  3. COTRIMOXAZOLE [Concomitant]
     Active Substance: SULFAMETHOXAZOLE\TRIMETHOPRIM
     Indication: PROPHYLAXIS
     Dosage: UNK
     Route: 065
     Dates: start: 20200218
  4. CYTARABINE. [Suspect]
     Active Substance: CYTARABINE
     Indication: NON-HODGKIN^S LYMPHOMA
     Dosage: 314 UNK, BID
     Route: 042
     Dates: start: 20200227
  5. GLYCERIN THYMOL [Concomitant]
     Indication: PROPHYLAXIS
     Dosage: UNK
     Route: 065
     Dates: start: 20200218
  6. RITUXIMAB. [Suspect]
     Active Substance: RITUXIMAB
     Indication: NON-HODGKIN^S LYMPHOMA
     Dosage: 600 UNK, ONCE/SINGLE
     Route: 042
     Dates: start: 20200225
  7. FEXOFENADINE [Concomitant]
     Active Substance: FEXOFENADINE HYDROCHLORIDE
     Indication: PROPHYLAXIS
     Dosage: UNK
     Route: 065
     Dates: start: 20200218, end: 20200224
  8. PARACETAMOL [Concomitant]
     Active Substance: ACETAMINOPHEN
     Indication: PROPHYLAXIS
     Dosage: UNK
     Route: 065
     Dates: start: 20200218, end: 20200220
  9. DEXTROMETHORPHAN [Concomitant]
     Active Substance: DEXTROMETHORPHAN
     Indication: PROPHYLAXIS
     Dosage: UNK
     Route: 065
     Dates: start: 20200218, end: 20200224
  10. CISPLATIN. [Suspect]
     Active Substance: CISPLATIN
     Indication: NON-HODGKIN^S LYMPHOMA
     Dosage: 157 UNK, Q24H
     Route: 042
     Dates: start: 20200228
  11. ACYCLOVIR. [Concomitant]
     Active Substance: ACYCLOVIR
     Indication: PROPHYLAXIS
     Dosage: UNK
     Route: 065
     Dates: start: 20200218
  12. ACETYLCYSTEINE. [Concomitant]
     Active Substance: ACETYLCYSTEINE
     Indication: PROPHYLAXIS
     Dosage: UNK
     Route: 065
     Dates: start: 20200218, end: 20200224

REACTIONS (1)
  - Febrile neutropenia [Not Recovered/Not Resolved]

NARRATIVE: CASE EVENT DATE: 20200309
